FAERS Safety Report 18772144 (Version 1)
Quarter: 2021Q1

REPORT INFORMATION
  Report Type: Report from Study
  Country: CA (occurrence: CA)
  Receive Date: 20210121
  Receipt Date: 20210121
  Transmission Date: 20210419
  Serious: Yes (Hospitalization, Other)
  Sender: FDA-Public Use
  Company Number: PHHY2018CA095833

PATIENT
  Age: 77 Year
  Sex: Female

DRUGS (7)
  1. SANDOSTATIN LAR DEPOT [Suspect]
     Active Substance: OCTREOTIDE ACETATE
     Indication: CARCINOID TUMOUR
     Dosage: 30 MG, QMO
     Route: 030
     Dates: start: 20171010
  2. NORVASC [Concomitant]
     Active Substance: AMLODIPINE BESYLATE
     Indication: PRODUCT USED FOR UNKNOWN INDICATION
     Dosage: 2.5 MG, BID
     Route: 048
     Dates: start: 202101
  3. SANDOSTATIN LAR DEPOT [Suspect]
     Active Substance: OCTREOTIDE ACETATE
     Dosage: 30 MG, QMO
     Route: 030
     Dates: start: 20191108
  4. SANDOSTATIN LAR DEPOT [Suspect]
     Active Substance: OCTREOTIDE ACETATE
     Dosage: 30 MG, QMO
     Route: 030
     Dates: start: 20180907
  5. SANDOSTATIN LAR DEPOT [Suspect]
     Active Substance: OCTREOTIDE ACETATE
     Dosage: 30 MG, QMO
     Route: 065
     Dates: start: 20200505
  6. IRBESARTAN. [Concomitant]
     Active Substance: IRBESARTAN
     Indication: HYPERTENSION
     Dosage: 300 MG, QD
     Route: 048
  7. IRBESARTAN. [Concomitant]
     Active Substance: IRBESARTAN
     Dosage: 150 MG, QD
     Route: 048

REACTIONS (17)
  - Metastases to bone [Unknown]
  - Metastasis [Unknown]
  - Neoplasm [Unknown]
  - Injection site pain [Unknown]
  - Hypertension [Unknown]
  - Logorrhoea [Unknown]
  - Blood pressure systolic increased [Unknown]
  - Metastases to liver [Unknown]
  - Fatigue [Unknown]
  - Constipation [Unknown]
  - Paraesthesia [Unknown]
  - Blood pressure increased [Unknown]
  - Reflux gastritis [Unknown]
  - Heart rate increased [Recovering/Resolving]
  - Influenza [Unknown]
  - Cough [Unknown]
  - Syringe issue [Unknown]

NARRATIVE: CASE EVENT DATE: 20180907
